FAERS Safety Report 17457403 (Version 1)
Quarter: 2020Q1

REPORT INFORMATION
  Report Type: Spontaneous
  Country: SE (occurrence: SE)
  Receive Date: 20200225
  Receipt Date: 20200225
  Transmission Date: 20200409
  Serious: Yes (Other)
  Sender: FDA-Public Use
  Company Number: SE-MYLANLABS-2020M1019433

PATIENT
  Age: 84 Year
  Sex: Male

DRUGS (18)
  1. ATORVASTATIN [Concomitant]
     Active Substance: ATORVASTATIN
     Dosage: 20 MILLIGRAM, QD
     Dates: start: 20171214
  2. FURIX [Concomitant]
     Dosage: 49 MILLIGRAM, QD
     Dates: start: 20190815
  3. VALSARTAN. [Concomitant]
     Active Substance: VALSARTAN
     Dosage: 80 MILLIGRAM, QD
     Dates: start: 20171212
  4. LEVAXIN [Concomitant]
     Active Substance: LEVOTHYROXINE SODIUM
     Dates: start: 20191023
  5. BUVENTOL [Concomitant]
     Active Substance: ALBUTEROL SULFATE
     Dosage: 1-2 DOSER VB, MAX 8 DOSER/DYGN EASYHALER 100 MIKROGRAM/DOS INHALATIONSPULVER
     Dates: start: 20171214
  6. LOCOID [Concomitant]
     Active Substance: HYDROCORTISONE BUTYRATE
     Dosage: UNK
     Dates: start: 20181108
  7. CANODERM [Concomitant]
     Active Substance: UREA
     Dosage: 1 DOSAGE FORM, PRN
     Dates: start: 20190503
  8. CEFADROXIL MONOHYDRATE [Concomitant]
     Active Substance: CEFADROXIL
     Dosage: 3000 MILLIGRAM, QD
     Dates: start: 20191209
  9. BISOPROLOL [Suspect]
     Active Substance: BISOPROLOL
     Indication: PRODUCT USED FOR UNKNOWN INDICATION
     Dosage: UNK
  10. MIRTAZAPINE. [Concomitant]
     Active Substance: MIRTAZAPINE
     Dosage: 30 MILLIGRAM, QD
     Dates: start: 20191023
  11. PRADAXA [Concomitant]
     Active Substance: DABIGATRAN ETEXILATE MESYLATE
     Dosage: 220 MILLIGRAM, QD
     Dates: start: 20190506
  12. EKLIRA GENUAIR [Concomitant]
     Active Substance: ACLIDINIUM BROMIDE
     Dosage: INHALATIONSPULVER
     Route: 055
     Dates: start: 20191023
  13. GLYTRIN                            /00003201/ [Concomitant]
     Dosage: 1-2- SPREJNINGAR VB, MAX 8/DYGN 0,4 MG/DOS
     Dates: start: 20171214
  14. FOLACIN                            /00024201/ [Concomitant]
     Active Substance: FOLIC ACID
     Dosage: 1 MILLIGRAM, QD
     Dates: start: 20171215
  15. FLUTIFORM [Concomitant]
     Active Substance: FLUTICASONE PROPIONATE\FORMOTEROL FUMARATE
     Dosage: 125 MIKROGRAM/5 MIKROGRAM/PUFF INHALATIONSSPRAY, SUSPENSION
     Route: 055
     Dates: start: 20190906
  16. ACETYLCYSTEINE. [Concomitant]
     Active Substance: ACETYLCYSTEINE
     Dosage: 1 VB 2 GGR/DAG
     Dates: start: 20190814
  17. ESOMEPRAZOLE. [Concomitant]
     Active Substance: ESOMEPRAZOLE MAGNESIUM
     Dosage: 40 MILLIGRAM, QD
     Dates: start: 20190907
  18. LYRICA [Concomitant]
     Active Substance: PREGABALIN
     Dosage: 225 MILLIGRAM, QD
     Dates: start: 20171214

REACTIONS (1)
  - Cardiac arrest [Recovered/Resolved]

NARRATIVE: CASE EVENT DATE: 20191209
